FAERS Safety Report 9174396 (Version 1)
Quarter: 2013Q1

REPORT INFORMATION
  Report Type: Spontaneous
  Country: DE (occurrence: DE)
  Receive Date: 20130320
  Receipt Date: 20130320
  Transmission Date: 20140127
  Serious: Yes (Other)
  Sender: FDA-Public Use
  Company Number: DE-JNJFOC-20040902715

PATIENT
  Age: 42 Year
  Sex: Female

DRUGS (2)
  1. MOTRIN [Suspect]
     Indication: TOOTHACHE
     Route: 048
     Dates: start: 20030727, end: 20030728
  2. ALEVE [Suspect]
     Indication: TOOTHACHE
     Route: 048
     Dates: start: 20030727, end: 20030728

REACTIONS (5)
  - Overdose [Unknown]
  - Chest pain [Unknown]
  - Abdominal pain [Unknown]
  - Abdominal pain upper [Unknown]
  - Vomiting [Unknown]
